FAERS Safety Report 5638758-6 (Version None)
Quarter: 2008Q1

REPORT INFORMATION
  Report Type: 
  Country: None (occurrence: None)
  Receive Date: 20080226
  Receipt Date: 20080219
  Transmission Date: 20080703
  Serious: Yes (Hospitalization)
  Sender: FDA-Public Use
  Company Number: US-BAXTER-2008BH001493

PATIENT
  Age: 49 Year
  Sex: Male

DRUGS (1)
  1. HEPARIN SODIUM [Suspect]
     Indication: THROMBOSIS PROPHYLAXIS
     Route: 042
     Dates: start: 20071110

REACTIONS (9)
  - BLOOD PRESSURE INCREASED [None]
  - CARDIAC FAILURE CONGESTIVE [None]
  - COUGH [None]
  - DUODENITIS [None]
  - DYSPNOEA [None]
  - GASTRITIS [None]
  - HICCUPS [None]
  - IMPAIRED GASTRIC EMPTYING [None]
  - PNEUMONIA [None]
